FAERS Safety Report 25699610 (Version 1)
Quarter: 2025Q3

REPORT INFORMATION
  Report Type: Other
  Country: JP (occurrence: JP)
  Receive Date: 20250819
  Receipt Date: 20250819
  Transmission Date: 20251021
  Serious: Yes (Death, Life-Threatening, Hospitalization, Other)
  Sender: ALVOGEN
  Company Number: JP-ALVOGEN-2025098524

PATIENT
  Age: 50 Year
  Sex: Male

DRUGS (5)
  1. DEXAMETHASONE [Suspect]
     Active Substance: DEXAMETHASONE
     Indication: Neoplasm recurrence
  2. METHOTREXATE [Suspect]
     Active Substance: METHOTREXATE
     Indication: Neoplasm recurrence
  3. IFOSFAMIDE [Suspect]
     Active Substance: IFOSFAMIDE
     Indication: Neoplasm recurrence
  4. ASPARAGINASE [Suspect]
     Active Substance: ASPARAGINASE
     Indication: Neoplasm recurrence
  5. ETOPOSIDE [Suspect]
     Active Substance: ETOPOSIDE
     Indication: Neoplasm recurrence

REACTIONS (8)
  - Immunodeficiency [Fatal]
  - Tracheobronchitis [Fatal]
  - Hypercapnia [Fatal]
  - Pneumonia [Fatal]
  - Diffuse alveolar damage [Fatal]
  - Stomatitis [Unknown]
  - Febrile neutropenia [Unknown]
  - Neutropenia [Unknown]
